FAERS Safety Report 5825900-7 (Version None)
Quarter: 2008Q3

REPORT INFORMATION
  Report Type: 
  Country: None (occurrence: None)
  Receive Date: 20080729
  Receipt Date: 20080720
  Transmission Date: 20090109
  Serious: Yes (Other)
  Sender: FDA-Public Use
  Company Number: DE-AMGEN-UK277865

PATIENT
  Sex: Male
  Weight: 125 kg

DRUGS (2)
  1. VECTIBIX [Suspect]
     Indication: COLORECTAL CANCER
     Route: 042
     Dates: start: 20080423
  2. ANTIBIOTIC NOS [Concomitant]
     Route: 065

REACTIONS (4)
  - ACNE [None]
  - PYREXIA [None]
  - RASH PUSTULAR [None]
  - SKIN IRRITATION [None]
